FAERS Safety Report 25932083 (Version 2)
Quarter: 2025Q4

REPORT INFORMATION
  Report Type: Report from Study
  Country: US (occurrence: US)
  Receive Date: 20251016
  Receipt Date: 20251112
  Transmission Date: 20260118
  Serious: Yes (Other)
  Sender: AIMMUNE
  Company Number: US-ZENPEP LLC-2025AIMT00802

PATIENT

DRUGS (2)
  1. ZENPEP [Suspect]
     Active Substance: PANCRELIPASE AMYLASE\PANCRELIPASE LIPASE\PANCRELIPASE PROTEASE
     Indication: Pancreatic failure
     Dosage: 25,000 USP CAPSULES, 100 CT
     Route: 048
     Dates: start: 201808
  2. ZENPEP [Suspect]
     Active Substance: PANCRELIPASE AMYLASE\PANCRELIPASE LIPASE\PANCRELIPASE PROTEASE
     Dosage: 25,000 USP CAPSULES, ONCE, LAST DOSE PRIOR TO EVENTS
     Route: 048

REACTIONS (1)
  - Dementia Alzheimer^s type [Unknown]

NARRATIVE: CASE EVENT DATE: 20231010
